FAERS Safety Report 12271990 (Version 1)
Quarter: 2016Q2

REPORT INFORMATION
  Report Type: Spontaneous
  Country: US (occurrence: US)
  Receive Date: 20160415
  Receipt Date: 20160415
  Transmission Date: 20160815
  Serious: No
  Sender: FDA-Public Use
  Company Number: US-ASTRAZENECA-2016SE26189

PATIENT
  Sex: Female
  Weight: 52.2 kg

DRUGS (4)
  1. METOPROLOL SUCCINATE. [Suspect]
     Active Substance: METOPROLOL SUCCINATE
     Indication: STENT PLACEMENT
     Route: 048
     Dates: start: 20150820
  2. BRILINTA [Suspect]
     Active Substance: TICAGRELOR
     Indication: STENT PLACEMENT
     Route: 048
     Dates: start: 20150820
  3. ASPIRIN. [Concomitant]
     Active Substance: ASPIRIN
     Indication: STENT PLACEMENT
     Route: 048
     Dates: start: 20150820
  4. LISINOPRIL. [Suspect]
     Active Substance: LISINOPRIL
     Indication: STENT PLACEMENT
     Route: 048
     Dates: start: 20150820

REACTIONS (4)
  - Eating disorder [Unknown]
  - Nausea [Unknown]
  - Tenderness [Unknown]
  - Dysgeusia [Unknown]
